FAERS Safety Report 24015886 (Version 2)
Quarter: 2024Q3

REPORT INFORMATION
  Report Type: Spontaneous
  Country: EG (occurrence: EG)
  Receive Date: 20240626
  Receipt Date: 20240711
  Transmission Date: 20241016
  Serious: Yes (Other)
  Sender: CIPLA
  Company Number: EG-CIPLA LTD.-2024EG06334

PATIENT

DRUGS (12)
  1. BLEOMYCIN SULFATE [Suspect]
     Active Substance: BLEOMYCIN SULFATE
     Indication: Hodgkin^s disease
     Dosage: 22 UNIT, EVERY 2 WEEKS (INFUSION)
     Route: 042
     Dates: start: 20231106
  2. BLEOMYCIN SULFATE [Suspect]
     Active Substance: BLEOMYCIN SULFATE
     Dosage: 22 UNIT, EVERY 2 WEEKS (INFUSION)
     Route: 042
     Dates: start: 2023
  3. BLEOMYCIN SULFATE [Suspect]
     Active Substance: BLEOMYCIN SULFATE
     Dosage: 22 UNIT, EVERY 2 WEEKS (INFUSION)
     Route: 042
     Dates: start: 20240104
  4. ADRIACIN [Suspect]
     Active Substance: DOXORUBICIN HYDROCHLORIDE
     Indication: Hodgkin^s disease
     Dosage: 55 MILLIGRAM, EVERY 2 WEEKS
     Route: 042
     Dates: start: 20231107
  5. ADRIACIN [Suspect]
     Active Substance: DOXORUBICIN HYDROCHLORIDE
     Dosage: 55 MILLIGRAM, EVERY 2 WEEKS
     Route: 042
     Dates: start: 2023
  6. ADRIACIN [Suspect]
     Active Substance: DOXORUBICIN HYDROCHLORIDE
     Dosage: 55 MILLIGRAM, EVERY 2 WEEKS
     Route: 042
     Dates: start: 20240104
  7. VINCRISTINE SULFATE [Suspect]
     Active Substance: VINCRISTINE SULFATE
     Indication: Hodgkin^s disease
     Dosage: 2 MILLIGRAM, EVERY 2 WEEKS
     Route: 042
     Dates: start: 20231107
  8. VINCRISTINE SULFATE [Suspect]
     Active Substance: VINCRISTINE SULFATE
     Dosage: 2 MILLIGRAM, EVERY 2 WEEKS
     Route: 042
     Dates: start: 2023
  9. VINCRISTINE SULFATE [Suspect]
     Active Substance: VINCRISTINE SULFATE
     Dosage: 2 MILLIGRAM, EVERY 2 WEEKS
     Route: 042
     Dates: start: 20240104
  10. DACARBAZINE [Suspect]
     Active Substance: DACARBAZINE
     Indication: Hodgkin^s disease
     Dosage: 825 MILLIGRAM, EVERY 2 WEEKS
     Route: 042
     Dates: start: 20231107
  11. DACARBAZINE [Suspect]
     Active Substance: DACARBAZINE
     Dosage: 825 MILLIGRAM, EVERY 2 WEEKS
     Route: 042
     Dates: start: 2023
  12. DACARBAZINE [Suspect]
     Active Substance: DACARBAZINE
     Dosage: 825 MILLIGRAM, EVERY 2 WEEKS
     Route: 042
     Dates: start: 20240104

REACTIONS (3)
  - Neutropenia [Unknown]
  - Abdominal pain upper [Not Recovered/Not Resolved]
  - Abdominal distension [Not Recovered/Not Resolved]

NARRATIVE: CASE EVENT DATE: 20231122
